FAERS Safety Report 21142821 (Version 1)
Quarter: 2022Q3

REPORT INFORMATION
  Report Type: Spontaneous
  Country: US (occurrence: None)
  Receive Date: 20220728
  Receipt Date: 20220728
  Transmission Date: 20221027
  Serious: Yes (Death)
  Sender: FDA-Public Use
  Company Number: None

PATIENT
  Age: 81 Year
  Sex: Female

DRUGS (4)
  1. MYCOPHENOLIC ACID [Suspect]
     Active Substance: MYCOPHENOLIC ACID
     Indication: Renal transplant
     Dosage: TAKE 2 CAPSULES BY MOUTH AT 9:00 AM AND 2 CAPSULES AT 9:00 PM
     Route: 048
     Dates: start: 20220405, end: 20220726
  2. PREDNISONE [Concomitant]
     Active Substance: PREDNISONE
  3. TACROLIMUS [Concomitant]
  4. TACROLIMUS A [Concomitant]

REACTIONS (1)
  - Death [None]

NARRATIVE: CASE EVENT DATE: 20220726
